FAERS Safety Report 21739615 (Version 1)
Quarter: 2022Q4

REPORT INFORMATION
  Report Type: Spontaneous
  Country: GB (occurrence: GB)
  Receive Date: 20221216
  Receipt Date: 20221216
  Transmission Date: 20230112
  Serious: Yes (Other)
  Sender: FDA-Public Use
  Company Number: GB-MHRA-MED-202212052117026100-LVFNB

PATIENT
  Age: 64 Year
  Sex: Female

DRUGS (3)
  1. DOXYCYCLINE [Suspect]
     Active Substance: DOXYCYCLINE
     Indication: Sinusitis
     Dosage: 100 MILLIGRAM DAILY;  UNIT DOSE : 100 MG, FREQUENCY ; 1 , FREQUENCY TIME : 1 DAYS,
     Route: 065
  2. CODEINE [Concomitant]
     Active Substance: CODEINE
     Indication: Hypertonic bladder
     Dates: start: 20220403
  3. OXYBUTYNIN [Concomitant]
     Active Substance: OXYBUTYNIN
     Indication: Hypertonic bladder
     Dates: start: 20220403

REACTIONS (3)
  - Abdominal pain upper [Not Recovered/Not Resolved]
  - Tremor [Not Recovered/Not Resolved]
  - Frequent bowel movements [Not Recovered/Not Resolved]

NARRATIVE: CASE EVENT DATE: 20221128
